FAERS Safety Report 8562681-0 (Version None)
Quarter: 2012Q3

REPORT INFORMATION
  Report Type: 
  Country: None (occurrence: None)
  Receive Date: 20120802
  Receipt Date: 20120720
  Transmission Date: 20120928
  Serious: Yes (Hospitalization)
  Sender: FDA-Public Use
  Company Number: US-ARROW-2012-12993

PATIENT
  Sex: Female

DRUGS (2)
  1. LANTUS [Suspect]
     Indication: TYPE 2 DIABETES MELLITUS
     Dosage: 100 UNITS DAILY
     Route: 058
  2. METFORMIN HCL [Suspect]
     Indication: TYPE 2 DIABETES MELLITUS
     Dosage: UNK
     Route: 065

REACTIONS (9)
  - HYPOGLYCAEMIA [None]
  - ASTHENIA [None]
  - MALAISE [None]
  - DECREASED APPETITE [None]
  - DEHYDRATION [None]
  - OVARIAN CYST [None]
  - BLOOD GLUCOSE INCREASED [None]
  - VASCULITIS [None]
  - MEDICATION ERROR [None]
